FAERS Safety Report 8044469-2 (Version None)
Quarter: 2012Q1

REPORT INFORMATION
  Report Type: 
  Country: None (occurrence: None)
  Receive Date: 20120111
  Receipt Date: 20120111
  Transmission Date: 20120608
  Serious: No
  Sender: FDA-Public Use
  Company Number: None

PATIENT
  Sex: Female
  Weight: 9.5255 kg

DRUGS (1)
  1. PERMETHRIN [Suspect]
     Dosage: QD TOPICAL
     Route: 061

REACTIONS (4)
  - ACARODERMATITIS [None]
  - ERYTHEMA [None]
  - SWELLING FACE [None]
  - CONDITION AGGRAVATED [None]
